FAERS Safety Report 7082076-9 (Version None)
Quarter: 2010Q4

REPORT INFORMATION
  Report Type: 
  Country: None (occurrence: None)
  Receive Date: 20101103
  Receipt Date: 20101022
  Transmission Date: 20110411
  Serious: Yes (Disabling, Other)
  Sender: FDA-Public Use
  Company Number: US-PFIZER INC-2010134777

PATIENT
  Sex: Female
  Weight: 83.9 kg

DRUGS (3)
  1. NEURONTIN [Suspect]
     Indication: DIABETIC NEUROPATHY
     Dosage: 100 MG, 2X/DAY
     Route: 048
     Dates: start: 20000101
  2. HUMULIN N [Concomitant]
     Indication: DIABETES MELLITUS
     Dosage: 70 IU/ML, 1X/DAY
     Dates: start: 19880101
  3. HUMALOG [Concomitant]
     Indication: DIABETES MELLITUS
     Dosage: 50 IU/ML, 1X/DAY
     Dates: start: 19880101

REACTIONS (4)
  - BLINDNESS [None]
  - BLOOD CHOLESTEROL INCREASED [None]
  - GLAUCOMA [None]
  - HYPERTENSION [None]
